FAERS Safety Report 5879051-6 (Version None)
Quarter: 2008Q3

REPORT INFORMATION
  Report Type: 
  Country: None (occurrence: None)
  Receive Date: 20080912
  Receipt Date: 20080909
  Transmission Date: 20090109
  Serious: Yes (Other)
  Sender: FDA-Public Use
  Company Number: PHEH2008US07179

PATIENT
  Sex: Female

DRUGS (1)
  1. RECLAST [Suspect]

REACTIONS (9)
  - ASTHENIA [None]
  - CHILLS [None]
  - FALL [None]
  - FATIGUE [None]
  - MONOPLEGIA [None]
  - MOTOR DYSFUNCTION [None]
  - PYREXIA [None]
  - SENSORY LOSS [None]
  - URINARY INCONTINENCE [None]
